FAERS Safety Report 5390568-3 (Version None)
Quarter: 2007Q3

REPORT INFORMATION
  Report Type: 
  Country: None (occurrence: None)
  Receive Date: 20070718
  Receipt Date: 20060530
  Transmission Date: 20080115
  Serious: No
  Sender: FDA-Public Use
  Company Number: US-KINGPHARMUSA00001-K200600699

PATIENT

DRUGS (5)
  1. LEVOXYL [Suspect]
     Indication: HYPOTHYROIDISM
     Dosage: 50 MCG, QD
     Route: 048
     Dates: start: 20060201
  2. FUROSEMIDE [Concomitant]
     Indication: FLUID RETENTION
     Dosage: 20 MG, QD
     Route: 048
     Dates: start: 20060401
  3. OXYCODONE HCL [Concomitant]
  4. XANAX [Concomitant]
  5. VITAMIN B-12 [Concomitant]

REACTIONS (4)
  - ANOREXIA [None]
  - CHEST PAIN [None]
  - NIPPLE PAIN [None]
  - OEDEMA PERIPHERAL [None]
